FAERS Safety Report 5428489-X (Version None)
Quarter: 2007Q3

REPORT INFORMATION
  Report Type: 
  Country: None (occurrence: None)
  Receive Date: 20070731
  Receipt Date: 20070430
  Transmission Date: 20080115
  Serious: No
  Sender: FDA-Public Use
  Company Number: US200705000156

PATIENT
  Age: 57 Year
  Sex: Female

DRUGS (5)
  1. BYETTA [Suspect]
     Indication: DIABETES MELLITUS
     Dosage: 10 UG, EACH MORNING, SUBCUTANEOUS; 5 UG, EACH EVENING, SUBCUTANEOUS; 10 UG, DAILY (1/D), SUBCUTANEOU
     Route: 058
     Dates: start: 20060101, end: 20070101
  2. BYETTA [Suspect]
     Indication: DIABETES MELLITUS
     Dosage: 10 UG, EACH MORNING, SUBCUTANEOUS; 5 UG, EACH EVENING, SUBCUTANEOUS; 10 UG, DAILY (1/D), SUBCUTANEOU
     Route: 058
     Dates: start: 20060101, end: 20070101
  3. BYETTA [Suspect]
     Indication: DIABETES MELLITUS
     Dosage: 10 UG, EACH MORNING, SUBCUTANEOUS; 5 UG, EACH EVENING, SUBCUTANEOUS; 10 UG, DAILY (1/D), SUBCUTANEOU
     Route: 058
     Dates: start: 20070101
  4. METFORMIN HCL [Concomitant]
  5. GLIPIZIDE [Concomitant]

REACTIONS (3)
  - BLOOD GLUCOSE FLUCTUATION [None]
  - BLOOD GLUCOSE INCREASED [None]
  - INJECTION SITE BRUISING [None]
